FAERS Safety Report 11514260 (Version 1)
Quarter: 2015Q3

REPORT INFORMATION
  Report Type: Spontaneous
  Country: US (occurrence: US)
  Receive Date: 20150903
  Receipt Date: 20150903
  Transmission Date: 20151125
  Serious: Yes (Other)
  Sender: FDA-Public Use
  Company Number: US-ELI_LILLY_AND_COMPANY-US201212008266

PATIENT
  Sex: Male

DRUGS (9)
  1. CYMBALTA [Suspect]
     Active Substance: DULOXETINE HYDROCHLORIDE
     Indication: DEPRESSION
     Dosage: 30 MG, QD
     Dates: start: 20121220, end: 20121224
  2. CLARITIN [Concomitant]
     Active Substance: LORATADINE
  3. BETASERON [Concomitant]
     Active Substance: INTERFERON BETA-1B
     Dosage: UNK, QOD
  4. BACLOFEN. [Concomitant]
     Active Substance: BACLOFEN
     Dosage: UNK, QD
  5. NAPROXEN. [Concomitant]
     Active Substance: NAPROXEN
     Dosage: UNK, BID
  6. LEVOTHYROXINE. [Concomitant]
     Active Substance: LEVOTHYROXINE
     Dosage: 250 UG, QD
  7. TESTOSTERONE. [Concomitant]
     Active Substance: TESTOSTERONE
     Dosage: 1 ML, 2/M
     Route: 030
  8. NEUROTIN                           /00949202/ [Concomitant]
     Active Substance: ACETYLCARNITINE HYDROCHLORIDE
     Dosage: 200 MG, TID
  9. OMEPRAZOL [Concomitant]
     Active Substance: OMEPRAZOLE
     Dosage: UNK, QD

REACTIONS (15)
  - Feeling abnormal [Unknown]
  - Muscle twitching [Unknown]
  - Fatigue [Unknown]
  - Dizziness [Unknown]
  - Muscle tightness [Unknown]
  - Heart rate increased [Unknown]
  - Aura [Unknown]
  - Flushing [Unknown]
  - Decreased appetite [Unknown]
  - Blood pressure increased [Unknown]
  - Nausea [Unknown]
  - Dyspnoea [Unknown]
  - Diarrhoea [Unknown]
  - Muscle spasms [Unknown]
  - Chest discomfort [Unknown]
